FAERS Safety Report 7996306-X (Version None)
Quarter: 2011Q4

REPORT INFORMATION
  Report Type: 
  Country: None (occurrence: None)
  Receive Date: 20111220
  Receipt Date: 20111206
  Transmission Date: 20120403
  Serious: Yes (Hospitalization)
  Sender: FDA-Public Use
  Company Number: DE-COVIDIEN/TYCO HEALTHCARE/MALLINCKRODT-T201102908

PATIENT
  Sex: Female

DRUGS (1)
  1. EXALGO [Suspect]
     Indication: PAIN
     Dosage: 32 MG, QD
     Route: 048
     Dates: start: 20111103

REACTIONS (2)
  - EPILEPSY [None]
  - HYPOKALAEMIA [None]
